FAERS Safety Report 12248882 (Version 1)
Quarter: 2016Q2

REPORT INFORMATION
  Report Type: Spontaneous
  Country: US (occurrence: None)
  Receive Date: 20160407
  Receipt Date: 20160407
  Transmission Date: 20160815
  Serious: Yes (Other)
  Sender: FDA-Public Use
  Company Number: None

PATIENT
  Age: 46 Year
  Sex: Female

DRUGS (1)
  1. COSENTYX [Suspect]
     Active Substance: SECUKINUMAB
     Indication: PSORIASIS
     Dosage: 300MG EVERY 4 WK SC
     Route: 058
     Dates: start: 20160202

REACTIONS (2)
  - Unevaluable event [None]
  - Fatigue [None]

NARRATIVE: CASE EVENT DATE: 20160405
